FAERS Safety Report 22007737 (Version 1)
Quarter: 2023Q1

REPORT INFORMATION
  Report Type: Spontaneous
  Country: US (occurrence: US)
  Receive Date: 20230218
  Receipt Date: 20230218
  Transmission Date: 20230418
  Serious: No
  Sender: FDA-Public Use
  Company Number: US-Covis Pharma GmbH-2023COV00262

PATIENT
  Age: 62 Year
  Sex: Female

DRUGS (1)
  1. ALVESCO [Suspect]
     Active Substance: CICLESONIDE
     Indication: Asthma
     Dosage: 160 MCG, ORAL INHALATION, 2 PUFF DAILY
     Route: 055

REACTIONS (1)
  - Product dose omission issue [Unknown]
